FAERS Safety Report 6213204-2 (Version None)
Quarter: 2009Q2

REPORT INFORMATION
  Report Type: 
  Country: None (occurrence: None)
  Receive Date: 20090602
  Receipt Date: 20090602
  Transmission Date: 20091009
  Serious: No
  Sender: FDA-Public Use
  Company Number: None

PATIENT
  Age: 51 Year
  Sex: Male
  Weight: 73.9363 kg

DRUGS (1)
  1. CETUXIMAB BRISTOL-MYERS SQUIBB [Suspect]
     Indication: HEAD AND NECK CANCER
     Dosage: 400MG/M OVER 2 HOURS IV DRIP
     Route: 041
     Dates: start: 20090529, end: 20090529

REACTIONS (9)
  - CHILLS [None]
  - DIARRHOEA [None]
  - DYSPHAGIA [None]
  - HEADACHE [None]
  - HOT FLUSH [None]
  - HYPERSENSITIVITY [None]
  - MIGRAINE [None]
  - NAUSEA [None]
  - VOMITING [None]
